FAERS Safety Report 20237238 (Version 10)
Quarter: 2022Q3

REPORT INFORMATION
  Report Type: Report from Study
  Country: IT (occurrence: None)
  Receive Date: 20211228
  Receipt Date: 20220830
  Transmission Date: 20221027
  Serious: Yes (Hospitalization)
  Sender: FDA-Public Use
  Company Number: IT-Eisai Medical Research-EC-2021-105702

PATIENT
  Age: 74 Year
  Sex: Male
  Weight: 72 kg

DRUGS (23)
  1. LENVATINIB [Suspect]
     Active Substance: LENVATINIB
     Indication: Oesophageal adenocarcinoma
     Route: 048
     Dates: start: 20211116, end: 20211216
  2. LENVATINIB [Suspect]
     Active Substance: LENVATINIB
     Indication: Adenocarcinoma gastric
  3. PEMBROLIZUMAB [Suspect]
     Active Substance: PEMBROLIZUMAB
     Indication: Oesophageal adenocarcinoma
     Route: 041
     Dates: start: 20211116, end: 20211116
  4. PEMBROLIZUMAB [Suspect]
     Active Substance: PEMBROLIZUMAB
     Indication: Adenocarcinoma gastric
  5. FLUOROURACIL [Suspect]
     Active Substance: FLUOROURACIL
     Indication: Oesophageal adenocarcinoma
     Dosage: UNKNOWN DOSE; BOLUS
     Route: 040
     Dates: start: 20211116, end: 20211130
  6. FLUOROURACIL [Suspect]
     Active Substance: FLUOROURACIL
     Indication: Adenocarcinoma gastric
     Dosage: UNKNOWN DOSE
     Route: 042
     Dates: start: 20211116, end: 20211202
  7. LEUCOVORIN [Suspect]
     Active Substance: LEUCOVORIN
     Indication: Oesophageal adenocarcinoma
     Dosage: UNKNOWN DOSE
     Route: 042
     Dates: start: 20211116, end: 20211130
  8. LEUCOVORIN [Suspect]
     Active Substance: LEUCOVORIN
     Indication: Adenocarcinoma gastric
  9. OXALIPLATIN [Suspect]
     Active Substance: OXALIPLATIN
     Indication: Oesophageal adenocarcinoma
     Dosage: UNKNOWN DOSE
     Route: 042
     Dates: start: 20211116, end: 20211130
  10. OXALIPLATIN [Suspect]
     Active Substance: OXALIPLATIN
     Indication: Adenocarcinoma gastric
  11. BISOPROLOL [Concomitant]
     Active Substance: BISOPROLOL
     Dates: start: 202105
  12. ZOFENOPRIL [Concomitant]
     Active Substance: ZOFENOPRIL
     Dates: start: 202105
  13. LANSOPRAZOLE [Concomitant]
     Active Substance: LANSOPRAZOLE
     Dates: start: 202105
  14. ASPIRIN [Concomitant]
     Active Substance: ASPIRIN
     Dates: start: 202105
  15. METOCLOPRAMIDE HYDROCHLORIDE [Concomitant]
     Active Substance: METOCLOPRAMIDE HYDROCHLORIDE
     Route: 030
     Dates: start: 20211102, end: 202112
  16. NALOXONE HYDROCHLORIDE\OXYCODONE HYDROCHLORIDE [Concomitant]
     Active Substance: NALOXONE HYDROCHLORIDE\OXYCODONE HYDROCHLORIDE
     Dates: start: 202112, end: 20220124
  17. CANRENONE [Concomitant]
     Active Substance: CANRENONE
     Dates: start: 202112
  18. LUXAMIDE [Concomitant]
     Dates: start: 202112
  19. FOLICOM [Concomitant]
     Dates: start: 202112
  20. MYCOSTATIN [Concomitant]
     Active Substance: NYSTATIN
     Dates: start: 202112
  21. LASIX [Concomitant]
     Active Substance: FUROSEMIDE
     Dates: start: 202112
  22. TAMSULOSIN HYDROCHLORIDE [Concomitant]
     Active Substance: TAMSULOSIN HYDROCHLORIDE
     Dates: start: 202112
  23. PRODUTAL [Concomitant]
     Dates: start: 202112

REACTIONS (1)
  - Diarrhoea [Recovered/Resolved]

NARRATIVE: CASE EVENT DATE: 20211213
